FAERS Safety Report 4445622-7 (Version None)
Quarter: 2004Q3

REPORT INFORMATION
  Report Type: 
  Country: None (occurrence: None)
  Receive Date: 20040902
  Receipt Date: 20040817
  Transmission Date: 20050211
  Serious: Yes (Death, Hospitalization)
  Sender: FDA-Public Use
  Company Number: F01200402352

PATIENT
  Age: 63 Year
  Sex: Male

DRUGS (12)
  1. OXALIPLATIN  - SOLUTION - 140 MG [Suspect]
     Indication: NON-SMALL CELL LUNG CANCER STAGE IIIB
     Dosage: 140 MG Q2W,INTRAVENOUS NOS
     Route: 042
     Dates: start: 20040721, end: 20040721
  2. OXALIPLATIN  - SOLUTION - 140 MG [Suspect]
     Indication: NON-SMALL CELL LUNG CANCER STAGE IV
     Dosage: 140 MG Q2W,INTRAVENOUS NOS
     Route: 042
     Dates: start: 20040721, end: 20040721
  3. GEMCITABINE-SOLUTION-2000 MG [Suspect]
     Dosage: 2000 MG Q2W, INTRAVENOUS NOS
     Route: 042
     Dates: start: 20040721, end: 20040721
  4. ZESTRIL [Concomitant]
  5. TOREM (TORESEMIDE) [Concomitant]
  6. METOCLOPRAMIDE HYDROCHLORIDE [Concomitant]
  7. NEXIUM [Concomitant]
  8. IMPORTAL (LACTITOL) [Concomitant]
  9. LAXOBERON (SODIUM PICOSULFATE) [Concomitant]
  10. NICOTINELL TTS (NICOTINE) [Concomitant]
  11. CIPROFLOXACIN [Concomitant]
  12. NOVALGIN (METAMIZOLE SODIUM) [Concomitant]

REACTIONS (4)
  - ALANINE AMINOTRANSFERASE INCREASED [None]
  - BLOOD ALKALINE PHOSPHATASE INCREASED [None]
  - DYSPNOEA [None]
  - GAMMA-GLUTAMYLTRANSFERASE INCREASED [None]
